FAERS Safety Report 18309923 (Version 2)
Quarter: 2020Q4

REPORT INFORMATION
  Report Type: Spontaneous
  Country: US (occurrence: US)
  Receive Date: 20200925
  Receipt Date: 20201030
  Transmission Date: 20210113
  Serious: No
  Sender: FDA-Public Use
  Company Number: US-TEVA-2020-US-1825594

PATIENT
  Age: 30 Year
  Sex: Female

DRUGS (6)
  1. AJOVY [Suspect]
     Active Substance: FREMANEZUMAB-VFRM
     Indication: MIGRAINE
     Route: 065
     Dates: start: 2020
  2. TRAMADOL. [Concomitant]
     Active Substance: TRAMADOL
  3. AMITRIPTYLINE [Concomitant]
     Active Substance: AMITRIPTYLINE
     Indication: MIGRAINE
  4. IMITREX INJECTABLE [Concomitant]
  5. AJOVY [Suspect]
     Active Substance: FREMANEZUMAB-VFRM
  6. NAPROXEN. [Concomitant]
     Active Substance: NAPROXEN

REACTIONS (1)
  - Urine analysis abnormal [Unknown]

NARRATIVE: CASE EVENT DATE: 20200901
